FAERS Safety Report 24746906 (Version 2)
Quarter: 2025Q1

REPORT INFORMATION
  Report Type: Spontaneous
  Country: US (occurrence: US)
  Receive Date: 20241218
  Receipt Date: 20250127
  Transmission Date: 20250409
  Serious: Yes (Death, Other)
  Sender: SUNOVION
  Company Number: US-SMPA-2024SPA006227

PATIENT

DRUGS (25)
  1. ORGOVYX [Suspect]
     Active Substance: RELUGOLIX
     Indication: Prostate cancer
     Route: 048
  2. ORGOVYX [Suspect]
     Active Substance: RELUGOLIX
     Dosage: 120 MG, QD
     Route: 048
     Dates: start: 202311, end: 20240307
  3. ATIVAN [Concomitant]
     Active Substance: LORAZEPAM
     Indication: Nausea
     Route: 048
  4. ATIVAN [Concomitant]
     Active Substance: LORAZEPAM
     Indication: Anxiety
     Route: 048
  5. ATIVAN [Concomitant]
     Active Substance: LORAZEPAM
     Indication: Dyspnoea
  6. MILK OF MAGNESIA [Concomitant]
     Active Substance: MAGNESIUM HYDROXIDE
     Indication: Constipation
     Dosage: 2400 MG, QD
     Route: 048
  7. OXYGEN [Concomitant]
     Active Substance: OXYGEN
     Indication: Dyspnoea
     Route: 045
  8. OXYGEN [Concomitant]
     Active Substance: OXYGEN
     Route: 045
  9. OXYGEN [Concomitant]
     Active Substance: OXYGEN
     Route: 045
  10. MIRALAX [Concomitant]
     Active Substance: POLYETHYLENE GLYCOL 3350
     Indication: Constipation
     Route: 048
  11. GLYCOLAX [Concomitant]
     Active Substance: POLYETHYLENE GLYCOL 3350
     Indication: Constipation
     Route: 048
  12. SENOKOT-S [Concomitant]
     Active Substance: DOCUSATE SODIUM\SENNOSIDES
     Indication: Constipation
     Dosage: 2 DF, BID
     Route: 048
  13. XYLITOL [Concomitant]
     Active Substance: XYLITOL
     Indication: Dry mouth
     Dosage: 2 DF, BID
     Route: 048
  14. ROBINUL [Concomitant]
     Active Substance: GLYCOPYRROLATE
     Indication: Illness
     Route: 048
  15. ROBINUL [Concomitant]
     Active Substance: GLYCOPYRROLATE
     Indication: Nasal congestion
     Route: 048
  16. ROBINUL [Concomitant]
     Active Substance: GLYCOPYRROLATE
     Route: 048
  17. ROBINUL [Concomitant]
     Active Substance: GLYCOPYRROLATE
     Route: 048
  18. HALDOL [Concomitant]
     Active Substance: HALOPERIDOL
     Indication: Abnormal behaviour
     Dosage: 5 MG, QID
     Route: 048
  19. LEVSIN [Concomitant]
     Active Substance: HYOSCYAMINE SULFATE
     Indication: Nasal congestion
     Route: 060
  20. BIOFREEZE [Concomitant]
     Active Substance: MENTHOL
     Dosage: 1 APPLICATION, FOUR TIME DAILY, AS NECESSARY
     Route: 061
  21. COMPAZINE [Concomitant]
     Active Substance: PROCHLORPERAZINE MALEATE
     Indication: Prophylaxis of nausea and vomiting
     Route: 048
  22. RISPERDAL [Concomitant]
     Active Substance: RISPERIDONE
     Indication: Agitation
     Dosage: 0.5 MG, BID
     Route: 048
  23. RISPERDAL [Concomitant]
     Active Substance: RISPERIDONE
     Indication: Emotional distress
  24. SENOKOT [Concomitant]
     Active Substance: SENNOSIDES
     Indication: Constipation
     Dosage: 1 DF, BID
     Route: 048
  25. SENOKOT [Concomitant]
     Active Substance: SENNOSIDES
     Dosage: 8 DF, BID (TITRATE FOR CONSTIPATION UP TO 8 TABLETS PER DAY)
     Route: 048

REACTIONS (2)
  - Metastases to bone [Fatal]
  - Therapy cessation [Unknown]

NARRATIVE: CASE EVENT DATE: 20240307
